FAERS Safety Report 14455012 (Version 2)
Quarter: 2018Q1

REPORT INFORMATION
  Report Type: Spontaneous
  Country: US (occurrence: US)
  Receive Date: 20180129
  Receipt Date: 20180208
  Transmission Date: 20180509
  Serious: Yes (Other)
  Sender: FDA-Public Use
  Company Number: US-DSJP-DSU-2017-145020

PATIENT

DRUGS (2)
  1. BENICAR HCT [Suspect]
     Active Substance: HYDROCHLOROTHIAZIDE\OLMESARTAN MEDOXOMIL
     Indication: HYPERTENSION
     Dosage: 20-12.5 MG, QD
     Route: 048
     Dates: start: 20051024
  2. BENICAR HCT [Suspect]
     Active Substance: HYDROCHLOROTHIAZIDE\OLMESARTAN MEDOXOMIL
     Dosage: 40-25 MG, QD
     Route: 048
     Dates: end: 20161105

REACTIONS (6)
  - Constipation [Unknown]
  - Chronic kidney disease [Recovered/Resolved]
  - Sprue-like enteropathy [Recovered/Resolved]
  - Peptic ulcer [Unknown]
  - Oesophagitis [Unknown]
  - Diverticulitis [Unknown]

NARRATIVE: CASE EVENT DATE: 20060224
